FAERS Safety Report 5333188-9 (Version None)
Quarter: 2007Q2

REPORT INFORMATION
  Report Type: 
  Country: None (occurrence: None)
  Receive Date: 20070524
  Receipt Date: 20070510
  Transmission Date: 20071010
  Serious: Yes (Hospitalization)
  Sender: FDA-Public Use
  Company Number: DE-SANOFI-SYNTHELABO-A01200705415

PATIENT

DRUGS (2)
  1. ACETYLSALICYLIC ACID SRT [Concomitant]
     Indication: INFARCTION
     Dosage: UNK
     Route: 065
  2. ISCOVER [Suspect]
     Indication: INFARCTION
     Dosage: UNK
     Route: 048

REACTIONS (1)
  - INFARCTION [None]
